FAERS Safety Report 9789890 (Version 4)
Quarter: 2014Q1

REPORT INFORMATION
  Report Type: Spontaneous
  Country: US (occurrence: None)
  Receive Date: 20131227
  Receipt Date: 20140327
  Transmission Date: 20141002
  Serious: Yes (Hospitalization)
  Sender: FDA-Public Use
  Company Number: 2013SGN00847

PATIENT
  Age: 67 Year
  Sex: Female
  Weight: 67.4 kg

DRUGS (14)
  1. BRENTUXIMAB VEDOTIN (BRENTUXIMAB VEDOTIN) INJECTION [Suspect]
     Indication: HODGKIN^S DISEASE
     Route: 042
     Dates: start: 20131114, end: 20131205
  2. BENDAMUSTINE HYDROCHLORIDE (BENDAMUSTINE HYDROCHLORIDE) [Suspect]
     Indication: HODGKIN^S DISEASE
     Route: 042
     Dates: start: 20131114, end: 20131205
  3. ASPIRIN (ASPIRIN) [Concomitant]
  4. LEVOTHYROXINE (LEVOTHYROXINE) [Concomitant]
  5. LOSARTAN (LOSARTAN) [Concomitant]
  6. NOVOLIN 70/30 (INSULIN HUMAN, INSULIN HUMAN INJECTION, ISOPHANE) [Concomitant]
  7. OMEPRAZOLE (OMEPRAZOLE) [Concomitant]
  8. TEMAZEPAM (TEMAZEPAM) [Concomitant]
  9. ZOLPIDEM (ZOLPIDEM) [Concomitant]
  10. LANTUS (INSULIN GLARGINE) [Concomitant]
  11. CODEINE W/PARACETAMOL (CODEINE W/PARACETAMOL) [Concomitant]
  12. FERROUS SULFATE (FERROUS SULFATE) [Concomitant]
  13. SIMVASTATIN (SIMVASTATIN) [Concomitant]
  14. TRAMADOL (TRAMADOL HYDROCHLORIDE) [Concomitant]

REACTIONS (16)
  - Hypotension [None]
  - Malaise [None]
  - Pyrexia [None]
  - Dizziness [None]
  - Headache [None]
  - Dehydration [None]
  - Blood glucose increased [None]
  - Blood sodium decreased [None]
  - Blood potassium decreased [None]
  - Blood chloride decreased [None]
  - Urine leukocyte esterase positive [None]
  - Urine bilirubin increased [None]
  - Nitrite urine present [None]
  - Urinary tract infection [None]
  - Sepsis [None]
  - Systemic inflammatory response syndrome [None]
